FAERS Safety Report 24965164 (Version 1)
Quarter: 2025Q1

REPORT INFORMATION
  Report Type: Spontaneous
  Country: US (occurrence: US)
  Receive Date: 20250213
  Receipt Date: 20250213
  Transmission Date: 20250409
  Serious: No
  Sender: BAUSCH AND LOMB
  Company Number: US-BAUSCH-BL-2025-001898

PATIENT
  Sex: Male

DRUGS (2)
  1. TRULANCE [Suspect]
     Active Substance: PLECANATIDE
     Indication: Irritable bowel syndrome
     Dosage: 1 TABLET DAILY
     Route: 065
     Dates: start: 20250204, end: 20250208
  2. TRULANCE [Suspect]
     Active Substance: PLECANATIDE
     Dosage: 1/2 TABLET ONCE DAILY
     Route: 065
     Dates: start: 20250209

REACTIONS (2)
  - Diarrhoea [Recovering/Resolving]
  - Wrong technique in product usage process [Unknown]

NARRATIVE: CASE EVENT DATE: 20250206
